FAERS Safety Report 14169903 (Version 1)
Quarter: 2017Q4

REPORT INFORMATION
  Report Type: Spontaneous
  Country: GB (occurrence: GB)
  Receive Date: 20171108
  Receipt Date: 20171108
  Transmission Date: 20180321
  Serious: Yes (Other)
  Sender: FDA-Public Use
  Company Number: GB-TEVA-822038ACC

PATIENT
  Age: 73 Year
  Sex: Female
  Weight: 100 kg

DRUGS (2)
  1. INDAPAMIDE. [Concomitant]
     Active Substance: INDAPAMIDE
     Dosage: 1 DOSAGE FORMS DAILY;
     Dates: start: 20171012
  2. AMLODIPINE [Suspect]
     Active Substance: AMLODIPINE BESYLATE
     Dates: start: 20170914

REACTIONS (1)
  - Joint swelling [Recovered/Resolved]

NARRATIVE: CASE EVENT DATE: 20171019
